FAERS Safety Report 5407968-5 (Version None)
Quarter: 2007Q3

REPORT INFORMATION
  Report Type: 
  Country: None (occurrence: None)
  Receive Date: 20070803
  Receipt Date: 20070724
  Transmission Date: 20080115
  Serious: Yes (Other)
  Sender: FDA-Public Use
  Company Number: CHPA2007US08050

PATIENT
  Age: 54 Year
  Sex: Female

DRUGS (3)
  1. NICOTINE [Suspect]
     Indication: SMOKING CESSATION THERAPY
     Dosage: 21 MG, QD, TRANSDERMAL
     Route: 062
     Dates: start: 20070708, end: 20070713
  2. NICOTINE [Suspect]
     Indication: SMOKING CESSATION THERAPY
     Dosage: 14 MG, QD, TRANSDERMAL; 7MG, ONCE/SINGLE, TRANSDERMAL
     Route: 062
     Dates: start: 20070714, end: 20070721
  3. NICOTINE [Suspect]
     Indication: SMOKING CESSATION THERAPY
     Dosage: 14 MG, QD, TRANSDERMAL; 7MG, ONCE/SINGLE, TRANSDERMAL
     Route: 062
     Dates: start: 20070722, end: 20070722

REACTIONS (10)
  - ABNORMAL BEHAVIOUR [None]
  - AMNESIA [None]
  - CRYING [None]
  - DYSPNOEA [None]
  - FEELING OF DESPAIR [None]
  - HYPERTENSION [None]
  - INAPPROPRIATE AFFECT [None]
  - INAPPROPRIATE SCHEDULE OF DRUG ADMINISTRATION [None]
  - MOOD SWINGS [None]
  - SCREAMING [None]
